FAERS Safety Report 9359314 (Version 1)
Quarter: 2013Q2

REPORT INFORMATION
  Report Type: Spontaneous
  Country: GB (occurrence: GB)
  Receive Date: 20130620
  Receipt Date: 20130620
  Transmission Date: 20140414
  Serious: Yes (Other)
  Sender: FDA-Public Use
  Company Number: PHHY2013GB061092

PATIENT
  Age: 2 Year
  Sex: 0

DRUGS (9)
  1. CICLOSPORIN [Suspect]
  2. ETOPOSIDE [Concomitant]
     Indication: IMMUNOSUPPRESSION
     Dosage: 150 MG/M2, BIW
  3. DEXAMETHASONE [Concomitant]
     Indication: IMMUNOSUPPRESSION
     Dosage: 0.1 MG/KG, DAILY
  4. ALEMTUZUMAB [Concomitant]
  5. FLUDARABINE [Concomitant]
  6. CYCLOPHOSPHAMIDE [Concomitant]
  7. METHYLPREDNISOLONE [Concomitant]
     Indication: PROPHYLAXIS AGAINST GRAFT VERSUS HOST DISEASE
     Dosage: 1 MG/KG, DAILY
  8. MYCOPHENOLATE MOFETIL [Concomitant]
     Indication: PROPHYLAXIS AGAINST GRAFT VERSUS HOST DISEASE
  9. SIROLIMUS [Concomitant]
     Indication: PROPHYLAXIS AGAINST GRAFT VERSUS HOST DISEASE

REACTIONS (12)
  - Neurotoxicity [Recovered/Resolved]
  - Bone marrow failure [Recovered/Resolved]
  - Cardiovascular disorder [Recovered/Resolved]
  - Coagulopathy [Recovered/Resolved]
  - Hepatosplenomegaly [Recovered/Resolved]
  - Capillary leak syndrome [Recovered/Resolved]
  - Posterior reversible encephalopathy syndrome [Recovered/Resolved]
  - Pulmonary oedema [Recovered/Resolved]
  - Infection [Recovered/Resolved]
  - Pyrexia [Recovered/Resolved]
  - Rash generalised [Recovered/Resolved]
  - Histiocytosis haematophagic [Recovered/Resolved]
